FAERS Safety Report 15736909 (Version 2)
Quarter: 2018Q4

REPORT INFORMATION
  Report Type: Report from Study
  Country: US (occurrence: US)
  Receive Date: 20181218
  Receipt Date: 20181227
  Transmission Date: 20190205
  Serious: Yes (Hospitalization)
  Sender: FDA-Public Use
  Company Number: US-ACTELION-A-NJ2017-154201

PATIENT
  Age: 54 Year
  Sex: Female
  Weight: 68.48 kg

DRUGS (9)
  1. ADCIRCA [Concomitant]
     Active Substance: TADALAFIL
  2. VELETRI [Suspect]
     Active Substance: EPOPROSTENOL
     Indication: PULMONARY HYPERTENSION
     Dosage: 42 NG/KG, PER MIN
     Route: 042
  3. WARFARIN [Concomitant]
     Active Substance: WARFARIN
  4. VELETRI [Suspect]
     Active Substance: EPOPROSTENOL
     Dosage: 21 NG/KG, PER MIN
     Route: 042
  5. VELETRI [Suspect]
     Active Substance: EPOPROSTENOL
     Dosage: 24 NG/KG, PER MIN
     Route: 042
  6. LETAIRIS [Concomitant]
     Active Substance: AMBRISENTAN
  7. VELETRI [Suspect]
     Active Substance: EPOPROSTENOL
     Dosage: 18 NG/KG, PER MIN
     Route: 042
  8. VELETRI [Suspect]
     Active Substance: EPOPROSTENOL
     Dosage: 25 NG/KG, PER MIN
     Route: 042
  9. VELETRI [Suspect]
     Active Substance: EPOPROSTENOL
     Dosage: 60 NG/KG, PER MIN
     Route: 042

REACTIONS (33)
  - Asthenia [Unknown]
  - Decreased appetite [Unknown]
  - Dysmenorrhoea [Unknown]
  - Arthritis [Unknown]
  - Weight decreased [Unknown]
  - Nausea [Not Recovered/Not Resolved]
  - Vomiting [Recovering/Resolving]
  - Metrorrhagia [Unknown]
  - Dyspnoea [Unknown]
  - Breast pain [Unknown]
  - Gout [Unknown]
  - Catheter site inflammation [Unknown]
  - Catheter site pruritus [Unknown]
  - Non-cardiac chest pain [Recovered/Resolved]
  - Menstrual disorder [Unknown]
  - Arthralgia [Unknown]
  - Catheter site discharge [Unknown]
  - Catheter site pain [Unknown]
  - Scab [Unknown]
  - Trismus [Unknown]
  - Catheter site rash [Unknown]
  - Skin fissures [Unknown]
  - Skin discolouration [Unknown]
  - Dehydration [Unknown]
  - Catheter site erythema [Unknown]
  - Muscle spasms [Unknown]
  - Dyspnoea exertional [Unknown]
  - Pruritus [Unknown]
  - Memory impairment [Recovered/Resolved]
  - Peripheral swelling [Unknown]
  - Diarrhoea [Unknown]
  - Device related infection [Recovered/Resolved]
  - Pain in jaw [Not Recovered/Not Resolved]

NARRATIVE: CASE EVENT DATE: 201707
